FAERS Safety Report 13985374 (Version 1)
Quarter: 2017Q3

REPORT INFORMATION
  Report Type: Spontaneous
  Country: US (occurrence: None)
  Receive Date: 20170918
  Receipt Date: 20170918
  Transmission Date: 20171128
  Serious: No
  Sender: FDA-Public Use
  Company Number: None

PATIENT
  Age: 47 Year
  Sex: Male

DRUGS (1)
  1. FIRMAGON [Suspect]
     Active Substance: DEGARELIX ACETATE

REACTIONS (4)
  - Injection site erythema [None]
  - Injection site pain [None]
  - Injection site swelling [None]
  - Pruritus [None]

NARRATIVE: CASE EVENT DATE: 20170918
